FAERS Safety Report 9773921 (Version 2)
Quarter: 2014Q2

REPORT INFORMATION
  Report Type: Report from Study
  Country: GB (occurrence: GB)
  Receive Date: 20131220
  Receipt Date: 20140409
  Transmission Date: 20141212
  Serious: No
  Sender: FDA-Public Use
  Company Number: GB-ROCHE-1322185

PATIENT
  Age: 79 Year
  Sex: Female

DRUGS (8)
  1. RANIBIZUMAB [Suspect]
     Indication: AGE-RELATED MACULAR DEGENERATION
     Dosage: MOST RECENT DOSE: 29/JAN/2013
     Route: 050
     Dates: start: 20111114
  2. RANIBIZUMAB [Suspect]
     Route: 050
     Dates: start: 20130129
  3. SIMVASTATIN [Concomitant]
     Route: 065
     Dates: start: 2009
  4. SIMVASTATIN [Concomitant]
     Route: 065
     Dates: start: 20130204
  5. BISOPROLOL [Concomitant]
     Route: 065
     Dates: start: 2009
  6. BISOPROLOL [Concomitant]
     Route: 065
     Dates: start: 20130204
  7. FRUSEMIDE [Concomitant]
     Route: 065
     Dates: start: 2009
  8. FRUSEMIDE [Concomitant]
     Route: 065
     Dates: start: 20130204

REACTIONS (1)
  - Skin ulcer [Unknown]
